FAERS Safety Report 4679287-6 (Version None)
Quarter: 2005Q2

REPORT INFORMATION
  Report Type: 
  Country: None (occurrence: None)
  Receive Date: 20050531
  Receipt Date: 20050520
  Transmission Date: 20051028
  Serious: No
  Sender: FDA-Public Use
  Company Number: 2005-128263-NL

PATIENT
  Age: 25 Year
  Sex: Female

DRUGS (2)
  1. MIRTAZAPINE [Suspect]
     Indication: ANXIETY
     Dosage: 45 MG;
     Dates: start: 20050301
  2. MIRTAZAPINE [Suspect]
     Indication: DEPRESSION
     Dosage: 45 MG;
     Dates: start: 20050301

REACTIONS (2)
  - HYPERTENSION [None]
  - TACHYCARDIA [None]
